FAERS Safety Report 20692982 (Version 2)
Quarter: 2022Q2

REPORT INFORMATION
  Report Type: Report from Study
  Country: US (occurrence: US)
  Receive Date: 20220410
  Receipt Date: 20220606
  Transmission Date: 20220721
  Serious: Yes (Hospitalization, Other)
  Sender: FDA-Public Use
  Company Number: US-BRISTOL-MYERS SQUIBB COMPANY-2022-015628

PATIENT
  Sex: Female
  Weight: 73.48 kg

DRUGS (1)
  1. ELIQUIS [Suspect]
     Active Substance: APIXABAN
     Indication: Cerebrovascular accident prophylaxis
     Dates: start: 202007

REACTIONS (8)
  - Memory impairment [Unknown]
  - COVID-19 [Unknown]
  - Hallucination [Unknown]
  - Myalgia [Unknown]
  - Osteoarthritis [Unknown]
  - Fluid retention [Unknown]
  - Renal impairment [Unknown]
  - Polyuria [Unknown]

NARRATIVE: CASE EVENT DATE: 20210101
